FAERS Safety Report 4764268-4 (Version None)
Quarter: 2005Q3

REPORT INFORMATION
  Report Type: 
  Country: None (occurrence: None)
  Receive Date: 20050906
  Receipt Date: 20050825
  Transmission Date: 20060218
  Serious: Yes (Hospitalization, Other)
  Sender: FDA-Public Use
  Company Number: 2005060523

PATIENT
  Age: 69 Year
  Sex: Female
  Weight: 79.3795 kg

DRUGS (5)
  1. BEXTRA [Suspect]
     Indication: INFLAMMATION
     Dosage: (20 MG), ORAL
     Route: 048
     Dates: start: 20050301, end: 20050401
  2. BEXTRA [Suspect]
     Indication: PAIN
     Dosage: (20 MG), ORAL
     Route: 048
     Dates: start: 20050301, end: 20050401
  3. LIPITOR [Concomitant]
  4. VERAPAMIL (VBERAPAMIL) [Concomitant]
  5. QUININE SULFATE [Concomitant]

REACTIONS (5)
  - CONTUSION [None]
  - CORONARY ARTERY OCCLUSION [None]
  - FALL [None]
  - HEART RATE DECREASED [None]
  - LOSS OF CONSCIOUSNESS [None]
